FAERS Safety Report 9955279 (Version 2)
Quarter: 2014Q2

REPORT INFORMATION
  Report Type: Spontaneous
  Country: US (occurrence: US)
  Receive Date: 20140304
  Receipt Date: 20140516
  Transmission Date: 20141212
  Serious: No
  Sender: FDA-Public Use
  Company Number: US-PFIZER INC-2014058442

PATIENT
  Age: 16 Year
  Sex: Male
  Weight: 37.64 kg

DRUGS (1)
  1. GENOTROPIN [Suspect]
     Indication: BODY HEIGHT BELOW NORMAL
     Dosage: 12 MG, 6 DAYS A WEEK
     Route: 058
     Dates: start: 201401

REACTIONS (1)
  - Injection site bruising [Unknown]
